FAERS Safety Report 25652469 (Version 1)
Quarter: 2025Q3

REPORT INFORMATION
  Report Type: Spontaneous
  Country: US (occurrence: US)
  Receive Date: 20250807
  Receipt Date: 20250807
  Transmission Date: 20251020
  Serious: No
  Sender: BRISTOL-MYERS SQUIBB COMPANY
  Company Number: US-BRISTOL-MYERS SQUIBB COMPANY-2025-109002

PATIENT
  Age: 49 Year
  Sex: Female

DRUGS (3)
  1. SOTYKTU [Suspect]
     Active Substance: DEUCRAVACITINIB
     Indication: Psoriatic arthropathy
     Dates: start: 20250712
  2. SOTYKTU [Suspect]
     Active Substance: DEUCRAVACITINIB
     Indication: Rheumatoid arthritis
  3. SOTYKTU [Suspect]
     Active Substance: DEUCRAVACITINIB
     Indication: Eczema

REACTIONS (2)
  - Pruritus [Unknown]
  - Urticaria [Unknown]

NARRATIVE: CASE EVENT DATE: 20250716
